FAERS Safety Report 11055410 (Version 1)
Quarter: 2015Q2

REPORT INFORMATION
  Report Type: Spontaneous
  Country: US (occurrence: US)
  Receive Date: 20150422
  Receipt Date: 20150422
  Transmission Date: 20150821
  Serious: Yes (Death)
  Sender: FDA-Public Use
  Company Number: US-SIGMA-TAU US-2015STPI000218

PATIENT
  Age: 67 Year
  Sex: Female

DRUGS (1)
  1. MATULANE [Suspect]
     Active Substance: PROCARBAZINE HYDROCHLORIDE
     Indication: LYMPHOMA
     Dosage: 200 MG, QD
     Route: 048
     Dates: start: 20141113

REACTIONS (1)
  - Death [Fatal]

NARRATIVE: CASE EVENT DATE: 20141208
